FAERS Safety Report 22018031 (Version 1)
Quarter: 2023Q1

REPORT INFORMATION
  Report Type: Spontaneous
  Country: MW (occurrence: MW)
  Receive Date: 20230221
  Receipt Date: 20230221
  Transmission Date: 20230417
  Serious: Yes (Other)
  Sender: FDA-Public Use
  Company Number: MW-AMERICAN REGENT INC-2023000360

PATIENT
  Sex: Female

DRUGS (2)
  1. FERINJECT [Suspect]
     Active Substance: FERRIC CARBOXYMALTOSE
     Indication: Anaemia of pregnancy
     Dosage: 20MG/KG, UP TO 1000MG, ONCE AT ENROLMENT; 1 IN 1 TOTAL
  2. PYRIMETHAMINE\SULFADOXINE [Concomitant]
     Active Substance: PYRIMETHAMINE\SULFADOXINE
     Indication: Malaria prophylaxis
     Dosage: AT ENROLMENT AND 28 DAYS
     Route: 065

REACTIONS (2)
  - Maternal exposure during pregnancy [Unknown]
  - Hypophosphataemia [Unknown]
